FAERS Safety Report 8607898-1 (Version None)
Quarter: 2012Q3

REPORT INFORMATION
  Report Type: 
  Country: None (occurrence: None)
  Receive Date: 20120723
  Receipt Date: 20120713
  Transmission Date: 20120928
  Serious: Yes (Life-Threatening)
  Sender: FDA-Public Use
  Company Number: 2012032868

PATIENT
  Age: 42 Year
  Sex: Female
  Weight: 58.6047 kg

DRUGS (12)
  1. EPIPEN [Concomitant]
  2. ACETAMINOPHEN [Concomitant]
  3. ALBUTEROL [Concomitant]
  4. SYMBICORT [Concomitant]
  5. TUMS CALCIUM [Concomitant]
  6. LIDOCAINE/PRILOCAINE (EMLA) [Concomitant]
  7. SYNTHROID [Concomitant]
  8. FOSAMAX [Concomitant]
  9. HIZENTRA [Suspect]
     Indication: IMMUNODEFICIENCY COMMON VARIABLE
     Dosage: (12 G 1X/WEEK, 4 GM ON 3 TO 4 SITES OVER 1 TO 2 HOURS SUBCUTANEOUS)
     Route: 058
     Dates: end: 20120713
  10. DIPHENHYDRAMINE HCL [Concomitant]
  11. ALLEGRA [Concomitant]
  12. PREDNISONE TAB [Concomitant]

REACTIONS (3)
  - URTICARIA [None]
  - RASH MACULAR [None]
  - RASH PRURITIC [None]
